FAERS Safety Report 24778323 (Version 2)
Quarter: 2025Q1

REPORT INFORMATION
  Report Type: Spontaneous
  Country: PT (occurrence: PT)
  Receive Date: 20241226
  Receipt Date: 20250108
  Transmission Date: 20250409
  Serious: Yes (Hospitalization, Other)
  Sender: GLAXOSMITHKLINE
  Company Number: None

PATIENT

DRUGS (4)
  1. LAMOTRIGINE [Suspect]
     Active Substance: LAMOTRIGINE
     Indication: Depression
     Dosage: 25 MG, QD (75 MG 1X/DAY (STARTED WITH 25MG, TITRATED TO 25MG WEEKLY))
     Route: 048
     Dates: start: 20241112, end: 20241118
  2. LAMOTRIGINE [Suspect]
     Active Substance: LAMOTRIGINE
     Dosage: 50 MG, QD (75 MG 1X/DAY (STARTED WITH 25MG, TITRATED TO 25MG WEEKLY))
     Route: 048
     Dates: start: 20241119, end: 20241125
  3. LAMOTRIGINE [Suspect]
     Active Substance: LAMOTRIGINE
     Dosage: 75 MG, QD (75 MG 1X/DAY (STARTED WITH 25MG, TITRATED TO 25MG WEEKLY))
     Route: 048
     Dates: start: 20241126, end: 20241210
  4. FLUOXETINE [Concomitant]
     Active Substance: FLUOXETINE HYDROCHLORIDE
     Indication: Product used for unknown indication
     Dosage: 3 DF, QD (3 TABLETS PER DAY)
     Route: 065

REACTIONS (3)
  - Pyrexia [Unknown]
  - Rash [Unknown]
  - Hepatitis [Unknown]

NARRATIVE: CASE EVENT DATE: 20241206
